FAERS Safety Report 21981579 (Version 1)
Quarter: 2023Q1

REPORT INFORMATION
  Report Type: Spontaneous
  Country: AU (occurrence: AU)
  Receive Date: 20230212
  Receipt Date: 20230212
  Transmission Date: 20230418
  Serious: Yes (Other)
  Sender: FDA-Public Use
  Company Number: None

PATIENT
  Age: 53 Year
  Sex: Male

DRUGS (6)
  1. BASILIXIMAB [Suspect]
     Active Substance: BASILIXIMAB
     Indication: Immunosuppressant drug therapy
     Dosage: UNK, UNKNOWN
     Route: 065
  2. MYCOPHENOLATE MOFETIL [Suspect]
     Active Substance: MYCOPHENOLATE MOFETIL
     Indication: Immunosuppressant drug therapy
     Dosage: UNK, UNKNOWN
     Route: 065
  3. TACROLIMUS [Suspect]
     Active Substance: TACROLIMUS
     Indication: Immunosuppressant drug therapy
     Dosage: UNK, UNKNOWN
     Route: 065
  4. PREDNISONE [Suspect]
     Active Substance: PREDNISONE
     Indication: Immunosuppressant drug therapy
     Dosage: UNK, UNKNOWN
     Route: 065
  5. VANCOMYCIN [Concomitant]
     Active Substance: VANCOMYCIN
     Indication: Clostridium difficile colitis
     Dosage: 2 G, QD
     Route: 048
  6. GANCICLOVIR [Concomitant]
     Active Substance: GANCICLOVIR
     Indication: Proctalgia
     Dosage: UNK, UNKNOWN
     Route: 065

REACTIONS (7)
  - Cytomegalovirus infection reactivation [Recovering/Resolving]
  - Anal abscess [Recovering/Resolving]
  - Cytomegalovirus colitis [Recovering/Resolving]
  - Cytomegalovirus infection [Recovering/Resolving]
  - Thrombocytopenia [Unknown]
  - Anal fistula [Recovering/Resolving]
  - Anaemia [Unknown]
